FAERS Safety Report 5484895-9 (Version None)
Quarter: 2007Q4

REPORT INFORMATION
  Report Type: 
  Country: None (occurrence: None)
  Receive Date: 20071010
  Receipt Date: 20070927
  Transmission Date: 20080405
  Serious: Yes (Hospitalization)
  Sender: FDA-Public Use
  Company Number: CHNY2007IT03171

PATIENT
  Age: 25 Year
  Sex: Female

DRUGS (1)
  1. ACETYLSALICYLIC ACID SRT [Suspect]
     Indication: CHEST PAIN

REACTIONS (15)
  - ACUTE ABDOMEN [None]
  - CARDIAC TAMPONADE [None]
  - ELECTROCARDIOGRAM ABNORMAL [None]
  - FISTULA [None]
  - GASTRIC ULCER [None]
  - LEUKOCYTOSIS [None]
  - OVARIAN CYST RUPTURED [None]
  - PEPTIC ULCER [None]
  - PERICARDIAL EFFUSION [None]
  - PERITONEAL HAEMORRHAGE [None]
  - PNEUMOPERICARDIUM [None]
  - PURULENCE [None]
  - SHOCK [None]
  - SINUS TACHYCARDIA [None]
  - STREPTOCOCCAL INFECTION [None]
